FAERS Safety Report 4570699-8 (Version None)
Quarter: 2005Q1

REPORT INFORMATION
  Report Type: 
  Country: None (occurrence: None)
  Receive Date: 20050131
  Receipt Date: 20050120
  Transmission Date: 20050727
  Serious: Yes (Death, Other)
  Sender: FDA-Public Use
  Company Number: US-2004-030028

PATIENT
  Age: 53 Year
  Sex: Male
  Weight: 72.6 kg

DRUGS (12)
  1. BETASERON [Suspect]
     Indication: MULTIPLE SCLEROSIS
     Dates: start: 19940120, end: 20011218
  2. EFFEXOR [Concomitant]
  3. AMBIEN [Concomitant]
  4. WARFARIN SODIUM [Concomitant]
  5. ZOFRAN [Concomitant]
  6. REGLAN [Concomitant]
  7. MULTIVITAMINS (PANTHENOL, RETINOL) [Concomitant]
  8. ACETAMINOPHEN W/HYDROCODONE BITARTRATE (HYDROCODONE BITARTRATE) [Concomitant]
  9. ALLEGRA [Concomitant]
  10. GARLIC (ALLIUM SATIVUM) [Concomitant]
  11. MILK THISTLE [Concomitant]
  12. HERBAL TEA [Concomitant]

REACTIONS (3)
  - METASTASES TO LIVER [None]
  - PANCREATIC CARCINOMA METASTATIC [None]
  - RENAL CYST [None]
